FAERS Safety Report 6831759-1 (Version None)
Quarter: 2010Q2

REPORT INFORMATION
  Report Type: 
  Country: None (occurrence: None)
  Receive Date: 20100520
  Receipt Date: 20090331
  Transmission Date: 20101027
  Serious: Yes (Other)
  Sender: FDA-Public Use
  Company Number: 2009194681

PATIENT
  Age: 51 Year
  Weight: 59 kg

DRUGS (8)
  1. PROVERA [Suspect]
     Indication: MENOPAUSAL SYMPTOMS
     Dosage: 10 MG
     Dates: start: 19960611, end: 19970611
  2. MEDROXYPROGESTERONE ACETATE [Suspect]
     Indication: MENOPAUSAL SYMPTOMS
     Dosage: 10 MG, 1X/DAY
     Dates: start: 19951122, end: 19960131
  3. PREMPRO [Suspect]
     Indication: MENOPAUSAL SYMPTOMS
     Dosage: 0.625 MG, 2.5 MG
     Dates: start: 19971104, end: 20021201
  4. FEMHRT [Suspect]
     Indication: MENOPAUSAL SYMPTOMS
     Dosage: 1 MG
     Dates: start: 20020803, end: 20021021
  5. ORTHO-EST [Suspect]
     Indication: MENOPAUSAL SYMPTOMS
     Dosage: 1.25 MG, 1X/DAY
     Dates: start: 19951122, end: 19971011
  6. ALPRAZOLAM [Concomitant]
  7. PAXIL [Concomitant]
  8. ADALAT [Concomitant]

REACTIONS (1)
  - BREAST CANCER [None]
